FAERS Safety Report 23921272 (Version 1)
Quarter: 2024Q2

REPORT INFORMATION
  Report Type: Spontaneous
  Country: US (occurrence: None)
  Receive Date: 20240530
  Receipt Date: 20240530
  Transmission Date: 20240716
  Serious: Yes (Hospitalization)
  Sender: FDA-Public Use
  Company Number: None

PATIENT
  Age: 77 Year
  Sex: Male
  Weight: 108 kg

DRUGS (2)
  1. TOCILIZUMAB [Suspect]
     Active Substance: TOCILIZUMAB
     Indication: Transient ischaemic attack
     Route: 060
  2. TOCILIZUMAB [Suspect]
     Active Substance: TOCILIZUMAB
     Indication: Arthritis

REACTIONS (7)
  - Neutropenia [None]
  - Pneumonia [None]
  - Septic shock [None]
  - Mastoiditis [None]
  - Therapy cessation [None]
  - Hypotension [None]
  - Atrial fibrillation [None]

NARRATIVE: CASE EVENT DATE: 20240116
